FAERS Safety Report 25959207 (Version 1)
Quarter: 2025Q4

REPORT INFORMATION
  Report Type: Spontaneous
  Country: GB (occurrence: GB)
  Receive Date: 20251025
  Receipt Date: 20251025
  Transmission Date: 20260117
  Serious: Yes (Other)
  Sender: ABBVIE
  Company Number: GB-MHRA-TPP3506497C9538050YC1760552093783

PATIENT
  Age: 35 Year
  Sex: Female
  Weight: 121 kg

DRUGS (9)
  1. CARIPRAZINE [Suspect]
     Active Substance: CARIPRAZINE
     Indication: Ill-defined disorder
     Dosage: TAKE ONE ONCE DAILY
     Route: 048
     Dates: start: 20250401
  2. COCODAMOL [Concomitant]
     Active Substance: ACETAMINOPHEN\CODEINE PHOSPHATE
     Indication: Ill-defined disorder
     Dosage: ONE OR TWO TABLETS TO BE TAKEN EVERY 4-6 HOURS
     Dates: start: 20231130
  3. LITHIUM [Concomitant]
     Active Substance: LITHIUM
     Indication: Ill-defined disorder
     Dosage: TAKE TWO AT NIGHT
     Dates: start: 20240702
  4. PROPRANOLOL [Concomitant]
     Active Substance: PROPRANOLOL HYDROCHLORIDE
     Indication: Ill-defined disorder
     Dosage: TAKE ONE TDS AS DIRECTED
     Dates: start: 20241224
  5. Valupak vitamin d3 [Concomitant]
     Indication: Ill-defined disorder
     Dosage: ONE DAILY
     Dates: start: 20250401
  6. VENLAFAXINE [Concomitant]
     Active Substance: VENLAFAXINE HYDROCHLORIDE
     Indication: Ill-defined disorder
     Dosage: TAKE TWO CAPSULES ONCE A DAY IN THE EVENING
     Dates: start: 20230915
  7. CLONIDINE [Concomitant]
     Active Substance: CLONIDINE
     Indication: Hot flush
     Dosage: TAKE 3 TWICE DAILY
     Dates: start: 20250805
  8. PREGABALIN [Concomitant]
     Active Substance: PREGABALIN
     Indication: Ill-defined disorder
     Dosage: TAKE ONE CAPSULE TWO TIMES DAILY
     Dates: start: 20241223
  9. LEVOTHYROXINE [Concomitant]
     Active Substance: LEVOTHYROXINE
     Indication: Ill-defined disorder
     Dosage: TAKE ONE TABLET ONCE A DAY EACH MORNING
     Dates: start: 20250401

REACTIONS (1)
  - Gambling disorder [Not Recovered/Not Resolved]

NARRATIVE: CASE EVENT DATE: 20250701
